FAERS Safety Report 25483827 (Version 1)
Quarter: 2025Q2

REPORT INFORMATION
  Report Type: Spontaneous
  Country: JP (occurrence: JP)
  Receive Date: 20250626
  Receipt Date: 20250626
  Transmission Date: 20250716
  Serious: Yes (Death)
  Sender: JOHNSON AND JOHNSON
  Company Number: JP-JNJFOC-20250631268

PATIENT
  Age: 9 Decade
  Sex: Female

DRUGS (1)
  1. UPTRAVI [Suspect]
     Active Substance: SELEXIPAG
     Indication: Pulmonary hypertension
     Dosage: THERAPY END DATE 23-APR-2025
     Route: 048
     Dates: start: 20240920

REACTIONS (2)
  - Interstitial lung disease [Fatal]
  - Pulmonary hypertension [Fatal]
